FAERS Safety Report 6332145-3 (Version None)
Quarter: 2009Q3

REPORT INFORMATION
  Report Type: 
  Country: None (occurrence: None)
  Receive Date: 20090828
  Receipt Date: 20070814
  Transmission Date: 20100115
  Serious: Yes (Hospitalization, Other)
  Sender: FDA-Public Use
  Company Number: US-ASTRAZENECA-2007UW25292

PATIENT
  Age: 30 Year
  Sex: Male
  Weight: 78.9 kg

DRUGS (23)
  1. SEROQUEL [Suspect]
     Indication: BIPOLAR DISORDER
     Dosage: 150 MG-1200 MG
     Route: 048
     Dates: start: 20000101
  2. SEROQUEL [Suspect]
     Dosage: 25MG-1200MG
     Route: 048
     Dates: start: 20010901
  3. ZYPREXA [Concomitant]
     Dates: start: 20010612, end: 20020618
  4. HALDOL [Concomitant]
     Dates: start: 20020101
  5. HALDOL [Concomitant]
     Dates: start: 20020910
  6. THORAZINE [Concomitant]
     Dates: start: 19980101
  7. DEPAKOTE [Concomitant]
     Dates: start: 19980101, end: 20020101
  8. DEPAKOTE [Concomitant]
     Dosage: 250MG -500MG
     Dates: start: 19980508
  9. LITHIUM CARBONATE [Concomitant]
     Dates: start: 20050101
  10. EFFEXOR [Concomitant]
     Dates: start: 20010504
  11. RESTORIL [Concomitant]
     Dates: start: 20010504
  12. VALIUM [Concomitant]
     Dates: start: 20010504
  13. XANAX [Concomitant]
     Route: 048
     Dates: start: 19980508
  14. LIPITOR [Concomitant]
     Dosage: 20MG-40MG
     Dates: start: 20020910
  15. TENORMIN [Concomitant]
     Route: 048
     Dates: start: 20020910
  16. COGENTIN [Concomitant]
     Route: 048
     Dates: start: 20020910
  17. ATIVAN [Concomitant]
     Route: 048
     Dates: start: 20020910
  18. LORTAB [Concomitant]
     Dosage: 10/650MG, THREE TIMES A DAY
     Dates: start: 20020910
  19. PROZAC [Concomitant]
     Dates: start: 20020910
  20. CLONIDINE [Concomitant]
     Dates: start: 19980609
  21. GLIPIZIDE [Concomitant]
     Dates: start: 20060210
  22. MAXZIDE [Concomitant]
     Dosage: 37.5/25MG, ONE DAILY
     Dates: start: 20060210
  23. VASOTEC [Concomitant]
     Dates: start: 20060210

REACTIONS (29)
  - ASTHMA [None]
  - CARDIAC DISORDER [None]
  - CELLULITIS [None]
  - CHEST PAIN [None]
  - CHRONIC OBSTRUCTIVE PULMONARY DISEASE [None]
  - DEPRESSION [None]
  - DIABETES MELLITUS [None]
  - DIABETIC GASTROPARESIS [None]
  - DIABETIC GASTROPATHY [None]
  - DIABETIC NEUROPATHY [None]
  - DYSPNOEA [None]
  - EAR PAIN [None]
  - FACIAL BONES FRACTURE [None]
  - GOUT [None]
  - HALLUCINATION, AUDITORY [None]
  - HALLUCINATION, VISUAL [None]
  - HEAD INJURY [None]
  - INFECTION [None]
  - INJURY [None]
  - INSOMNIA [None]
  - MOOD DISORDER DUE TO A GENERAL MEDICAL CONDITION [None]
  - OVERDOSE [None]
  - PAIN IN EXTREMITY [None]
  - PHARYNGITIS [None]
  - PSYCHOTIC BEHAVIOUR [None]
  - RASH [None]
  - RECTAL HAEMORRHAGE [None]
  - RESPIRATORY FAILURE [None]
  - WEIGHT INCREASED [None]
